FAERS Safety Report 4438739-4 (Version None)
Quarter: 2004Q3

REPORT INFORMATION
  Report Type: 
  Country: None (occurrence: None)
  Receive Date: 20040901
  Receipt Date: 20040811
  Transmission Date: 20050211
  Serious: Yes (Hospitalization)
  Sender: FDA-Public Use
  Company Number: GB-BRISTOL-MYERS SQUIBB COMPANY-12667085

PATIENT
  Age: 57 Year
  Sex: Male
  Weight: 95 kg

DRUGS (2)
  1. CISPLATIN [Suspect]
     Indication: BLADDER CANCER
     Dosage: THERAPY DATES: 19-MAR TO 09-MAY-2004
     Route: 042
     Dates: start: 20040509, end: 20040509
  2. GEMCITABINE [Suspect]
     Indication: BLADDER CANCER
     Dosage: THERAPY DATES: 19-MAR TO 23-JUL-2004
     Route: 042
     Dates: start: 20040723, end: 20040723

REACTIONS (3)
  - ANAEMIA [None]
  - EPISTAXIS [None]
  - THROMBOCYTOPENIA [None]
